FAERS Safety Report 10753393 (Version 1)
Quarter: 2015Q1

REPORT INFORMATION
  Report Type: Spontaneous
  Country: CA (occurrence: None)
  Receive Date: 20150129
  Receipt Date: 20150129
  Transmission Date: 20150721
  Serious: Yes (Other)
  Sender: FDA-Public Use
  Company Number: COR_00236_2015

PATIENT
  Age: 3 Month
  Sex: Male

DRUGS (6)
  1. VINCRISTINE [Concomitant]
     Active Substance: VINCRISTINE
  2. CYCLOSPHOSPHAMIDE [Concomitant]
  3. CISPLATIN. [Concomitant]
     Active Substance: CISPLATIN
  4. CARBOPLATIN. [Suspect]
     Active Substance: CARBOPLATIN
     Indication: ATYPICAL TERATOID/RHABDOID TUMOUR OF CNS
     Dosage: 17 MG/KG, PER DAY, FOR 2 DAYS, FOR 2 CYCLES, GIVEN PRIOR TO SCT
  5. THIOTEPA (THIOTEPA) [Suspect]
     Active Substance: THIOTEPA
     Indication: ATYPICAL TERATOID/RHABDOID TUMOUR OF CNS
     Dosage: 10 MG, PER DAY FOR 2 DAYS ON DAY-3 AND -2 BEFORE SCT, FOR 2 CYCLES
  6. METHOTREXATE [Concomitant]
     Active Substance: METHOTREXATE

REACTIONS (1)
  - Pulmonary hypertension [None]
